FAERS Safety Report 6614976-5 (Version None)
Quarter: 2010Q1

REPORT INFORMATION
  Report Type: 
  Country: None (occurrence: None)
  Receive Date: 20100305
  Receipt Date: 20100222
  Transmission Date: 20100710
  Serious: Yes (Hospitalization)
  Sender: FDA-Public Use
  Company Number: ES-ELI_LILLY_AND_COMPANY-ES201002006125

PATIENT
  Sex: Male

DRUGS (5)
  1. GEMCITABINE HCL [Suspect]
     Indication: RENAL CELL CARCINOMA
     Dosage: 500 MG/M2, UNK
     Route: 042
     Dates: start: 20091008
  2. SUNITINIB MALATE [Suspect]
     Indication: RENAL CELL CARCINOMA
     Dosage: 37.5 MG, DAILY (1/D)
     Route: 048
     Dates: start: 20091008
  3. CAPECITABINE [Suspect]
     Indication: RENAL CELL CARCINOMA
     Route: 048
     Dates: start: 20091008
  4. OMNIC [Concomitant]
     Dosage: 0.4 MG, UNK
  5. AMLODIPINE [Concomitant]
     Dosage: 10 MG, DAILY (1/D)

REACTIONS (1)
  - DIABETES MELLITUS [None]
